FAERS Safety Report 5001916-8 (Version None)
Quarter: 2006Q2

REPORT INFORMATION
  Report Type: 
  Country: None (occurrence: None)
  Receive Date: 20060515
  Receipt Date: 20050706
  Transmission Date: 20061013
  Serious: Yes (Hospitalization, Disabling)
  Sender: FDA-Public Use
  Company Number: US-MERCK-0507USA00805

PATIENT
  Age: 37 Year
  Sex: Female
  Weight: 77 kg

DRUGS (27)
  1. TYLENOL W/ CODEINE [Concomitant]
     Route: 065
  2. RELPAX [Concomitant]
     Route: 065
  3. GLUCOSAMINE [Concomitant]
     Route: 065
  4. FLAXSEED [Concomitant]
     Route: 065
  5. FOLIC ACID [Concomitant]
     Route: 065
  6. PREVACID [Concomitant]
     Route: 065
  7. NEXIUM [Concomitant]
     Route: 065
  8. VALIUM [Concomitant]
     Route: 065
  9. DARVOCET-N 100 [Concomitant]
     Route: 065
  10. ULTRAM [Concomitant]
     Route: 065
  11. PRILOSEC [Concomitant]
     Route: 065
  12. [THERAPY UNSPECIFIED] [Concomitant]
     Route: 065
  13. DEPO-PROVERA SUSPENSION/INJ [Concomitant]
     Route: 065
  14. KEFLEX [Concomitant]
     Route: 065
  15. SERZONE [Concomitant]
     Route: 065
  16. VICODIN ES [Concomitant]
     Route: 065
  17. VIOXX [Suspect]
     Indication: ARTHRITIS
     Route: 048
     Dates: start: 20010101, end: 20030701
  18. BEXTRA [Concomitant]
     Route: 065
  19. CELEBREX [Concomitant]
     Route: 065
  20. LORCET-HD [Concomitant]
     Route: 065
  21. ZANAFLEX [Concomitant]
     Route: 065
  22. MORPHINE [Concomitant]
     Route: 065
  23. LIDOCAINE [Concomitant]
     Route: 065
  24. TRAZODONE HYDROCHLORIDE [Concomitant]
     Route: 065
  25. PAXIL [Concomitant]
     Route: 065
  26. AMBIEN [Concomitant]
     Route: 065
  27. LODINE [Concomitant]
     Route: 065

REACTIONS (6)
  - ADVERSE EVENT [None]
  - ARTHRITIS [None]
  - CARDIAC DISORDER [None]
  - GASTRIC DISORDER [None]
  - INJURY [None]
  - REPRODUCTIVE TRACT DISORDER [None]
